FAERS Safety Report 8197911-0 (Version None)
Quarter: 2012Q1

REPORT INFORMATION
  Report Type: 
  Country: None (occurrence: None)
  Receive Date: 20120309
  Receipt Date: 20120305
  Transmission Date: 20120608
  Serious: Yes (Hospitalization)
  Sender: FDA-Public Use
  Company Number: US-BAYER-2012-022604

PATIENT
  Age: 32 Year
  Sex: Female
  Weight: 90.703 kg

DRUGS (4)
  1. YASMIN [Suspect]
     Dosage: UNK
     Dates: start: 20060115, end: 20070130
  2. VICODIN [Concomitant]
  3. YAZ [Suspect]
     Dosage: UNK
     Dates: start: 20100516, end: 20100616
  4. PHENTERMINE [Concomitant]
     Indication: WEIGHT DECREASED
     Dosage: UNK
     Dates: start: 20100401, end: 20100601

REACTIONS (1)
  - PULMONARY EMBOLISM [None]
